FAERS Safety Report 16813298 (Version 1)
Quarter: 2019Q3

REPORT INFORMATION
  Report Type: Spontaneous
  Country: US (occurrence: US)
  Receive Date: 20190916
  Receipt Date: 20190916
  Transmission Date: 20191005
  Serious: Yes (Life-Threatening, Hospitalization, Other)
  Sender: FDA-Public Use
  Company Number: US-AUROBINDO-AUR-APL-2019-058841

PATIENT
  Age: 32 Year
  Sex: Female
  Weight: 54.4 kg

DRUGS (1)
  1. BUPIVACAINE HYDROCHLORIDE INJECTION USP 0.75% (7.5 MG/ML) [Suspect]
     Active Substance: BUPIVACAINE HYDROCHLORIDE
     Indication: NERVE BLOCK
     Dosage: 9 MILLILITER
     Route: 065

REACTIONS (6)
  - Pulseless electrical activity [Recovered/Resolved]
  - Neurotoxicity [Recovering/Resolving]
  - Seizure like phenomena [Unknown]
  - Accidental exposure to product [Unknown]
  - Circulatory collapse [Recovered/Resolved]
  - Injection site pain [Unknown]
